FAERS Safety Report 7283927-5 (Version None)
Quarter: 2011Q1

REPORT INFORMATION
  Report Type: 
  Country: None (occurrence: None)
  Receive Date: 20110209
  Receipt Date: 20110128
  Transmission Date: 20110831
  Serious: Yes (Hospitalization)
  Sender: FDA-Public Use
  Company Number: PHHY2011FR07309

PATIENT
  Age: 32 Year
  Sex: Female

DRUGS (6)
  1. RIFAMPICIN [Suspect]
     Dosage: UNK
  2. ISONIAZID [Suspect]
  3. BELATACEPT [Concomitant]
     Indication: IMMUNOSUPPRESSION
     Dosage: UNK
  4. PYRAZINAMIDE [Suspect]
     Dosage: UNK
  5. ETHAMBUTOL HYDROCHLORIDE [Suspect]
     Dosage: UNK
  6. PREDNISOLONE [Concomitant]
     Indication: IMMUNOSUPPRESSION
     Dosage: UNK

REACTIONS (2)
  - ACUTE HEPATIC FAILURE [None]
  - JAUNDICE [None]
